FAERS Safety Report 18507303 (Version 1)
Quarter: 2020Q4

REPORT INFORMATION
  Report Type: Report from Study
  Country: US (occurrence: US)
  Receive Date: 20201116
  Receipt Date: 20201116
  Transmission Date: 20210114
  Serious: Yes (Other)
  Sender: FDA-Public Use
  Company Number: US-JNJFOC-20201112771

PATIENT
  Age: 56 Year
  Sex: Female

DRUGS (3)
  1. ESKETAMINE [Suspect]
     Active Substance: ESKETAMINE
     Dosage: 84MG, 31 TOTAL DOSES
     Dates: start: 20200611, end: 20201029
  2. ESKETAMINE [Suspect]
     Active Substance: ESKETAMINE
     Indication: DEPRESSION
     Dosage: 84MG, 15 TOTAL DOSES
     Dates: start: 20200319, end: 20200604
  3. ESKETAMINE [Suspect]
     Active Substance: ESKETAMINE
     Dates: start: 20200609, end: 20200609

REACTIONS (1)
  - Deafness [Unknown]
